FAERS Safety Report 14742022 (Version 1)
Quarter: 2018Q2

REPORT INFORMATION
  Report Type: Spontaneous
  Country: US (occurrence: US)
  Receive Date: 20180410
  Receipt Date: 20180410
  Transmission Date: 20180711
  Serious: Yes (Other)
  Sender: FDA-Public Use
  Company Number: US-AKORN PHARMACEUTICALS-2018AKN00437

PATIENT
  Age: 18 Year
  Sex: Female
  Weight: 61 kg

DRUGS (5)
  1. MYORISAN [Suspect]
     Active Substance: ISOTRETINOIN
     Indication: ACNE
     Dosage: 40 MG, 1X/DAY
     Dates: start: 20170928, end: 201710
  2. MYORISAN [Suspect]
     Active Substance: ISOTRETINOIN
     Dosage: 40 MG, 2X/DAY
     Dates: start: 20171229, end: 20180206
  3. BIOTIN [Concomitant]
     Active Substance: BIOTIN
     Dosage: UNK, 1X/DAY
  4. IBUPROFEN. [Concomitant]
     Active Substance: IBUPROFEN
     Dosage: UNK, AS NEEDED
  5. MYORISAN [Suspect]
     Active Substance: ISOTRETINOIN
     Indication: ACNE
     Dosage: 30 MG, 2X/DAY
     Dates: start: 20171027, end: 201712

REACTIONS (6)
  - Tearfulness [Recovering/Resolving]
  - Anxiety [Recovering/Resolving]
  - Paranoia [Recovering/Resolving]
  - Fatigue [Recovering/Resolving]
  - Feeling abnormal [Recovering/Resolving]
  - Off label use [Recovered/Resolved]

NARRATIVE: CASE EVENT DATE: 20170928
